FAERS Safety Report 10078244 (Version 3)
Quarter: 2014Q2

REPORT INFORMATION
  Report Type: Spontaneous
  Country: BR (occurrence: BR)
  Receive Date: 20140415
  Receipt Date: 20140627
  Transmission Date: 20141212
  Serious: Yes (Other)
  Sender: FDA-Public Use
  Company Number: BR-ROCHE-1376875

PATIENT
  Sex: Female
  Weight: 60 kg

DRUGS (6)
  1. BONVIVA [Suspect]
     Indication: OSTEOPOROSIS
     Route: 048
  2. AMLODIPINE BESYLATE [Suspect]
     Indication: PRODUCT USED FOR UNKNOWN INDICATION
     Route: 065
  3. ALPRAZOLAM [Suspect]
     Indication: PRODUCT USED FOR UNKNOWN INDICATION
     Route: 065
  4. SELOZOK [Concomitant]
     Indication: CARDIAC DISORDER
     Route: 065
  5. PANTOPRAZOLE [Concomitant]
     Indication: GASTRIC VARICES
     Route: 065
     Dates: start: 2010
  6. SYNTHROID [Concomitant]
     Indication: HYPOTHYROIDISM
     Route: 065

REACTIONS (9)
  - Eye penetration [Unknown]
  - Sjogren^s syndrome [Unknown]
  - Tooth extraction [Unknown]
  - Stress [Unknown]
  - Ear discomfort [Unknown]
  - Sensory disturbance [Unknown]
  - Swelling [Unknown]
  - Insomnia [Unknown]
  - Somnolence [Unknown]
